FAERS Safety Report 11362536 (Version 4)
Quarter: 2023Q2

REPORT INFORMATION
  Report Type: Spontaneous
  Country: CA (occurrence: DE)
  Receive Date: 20150810
  Receipt Date: 20230522
  Transmission Date: 20230722
  Serious: Yes (Hospitalization, Other)
  Sender: FDA-Public Use
  Company Number: PHHY2015CA096506

PATIENT
  Age: 77 Year
  Sex: Female

DRUGS (39)
  1. AMITRIPTYLINE [Suspect]
     Active Substance: AMITRIPTYLINE
     Indication: Insomnia
     Dosage: 75 MG, QHS (AT BEDTIME)
     Route: 065
  2. AMITRIPTYLINE [Suspect]
     Active Substance: AMITRIPTYLINE
     Dosage: 50 MG, QHS (AT BEDTIME)
     Route: 065
  3. AMITRIPTYLINE [Suspect]
     Active Substance: AMITRIPTYLINE
     Dosage: 25 MG, QD
     Route: 065
  4. CYCLOBENZAPRINE [Suspect]
     Active Substance: CYCLOBENZAPRINE
     Indication: Fibromyalgia
     Dosage: 5 MG, TID
     Route: 065
  5. CYCLOBENZAPRINE [Suspect]
     Active Substance: CYCLOBENZAPRINE
     Dosage: 5 MG, BID (MORNING AND BEDTIME)
     Route: 065
  6. MORPHINE [Suspect]
     Active Substance: MORPHINE
     Indication: Fibromyalgia
     Dosage: 10 MG, QHS AT BEDTIME
     Route: 065
  7. CARBAMAZEPINE [Suspect]
     Active Substance: CARBAMAZEPINE
     Indication: Seizure prophylaxis
     Dosage: 200 MG, BID
     Route: 065
  8. CARBAMAZEPINE [Suspect]
     Active Substance: CARBAMAZEPINE
     Dosage: 100 MG, BID
     Route: 065
  9. OXAZEPAM [Suspect]
     Active Substance: OXAZEPAM
     Indication: Insomnia
     Dosage: 15 MG, QD
     Route: 048
  10. DILTIAZEM [Suspect]
     Active Substance: DILTIAZEM
     Indication: Coronary artery disease
     Dosage: 360 MG, DAILY
     Route: 065
  11. DILTIAZEM [Suspect]
     Active Substance: DILTIAZEM
     Indication: Hypertension
  12. DILTIAZEM [Suspect]
     Active Substance: DILTIAZEM
     Indication: Angina pectoris
  13. FUROSEMIDE [Suspect]
     Active Substance: FUROSEMIDE
     Indication: Oedema
     Dosage: 40 MG, DAILY
     Route: 061
  14. AMLODIPINE [Concomitant]
     Active Substance: AMLODIPINE BESYLATE
     Indication: Coronary artery disease
     Dosage: 5 MG, QD
     Route: 065
  15. AMLODIPINE [Concomitant]
     Active Substance: AMLODIPINE BESYLATE
     Indication: Hypertension
  16. ACEBUTOLOL [Concomitant]
     Active Substance: ACEBUTOLOL
     Indication: Coronary artery disease
     Dosage: 200 MG, BID
     Route: 065
  17. ACEBUTOLOL [Concomitant]
     Active Substance: ACEBUTOLOL
     Indication: Hypertension
  18. ACEBUTOLOL [Concomitant]
     Active Substance: ACEBUTOLOL
     Indication: Angina pectoris
  19. QUINAPRIL [Concomitant]
     Active Substance: QUINAPRIL
     Indication: Coronary artery disease
     Dosage: 40 MG, QD
     Route: 048
  20. QUINAPRIL [Concomitant]
     Active Substance: QUINAPRIL
     Indication: Hypertension
  21. NITROGLYCERIN [Concomitant]
     Active Substance: NITROGLYCERIN
     Indication: Coronary artery disease
     Dosage: 0.6 MG/H (AT BEDTIME) (PATCH)
     Route: 062
  22. NITROGLYCERIN [Concomitant]
     Active Substance: NITROGLYCERIN
     Indication: Angina pectoris
     Dosage: 0.4 MG/H, UNK (SPRAY AS NEEDED)
     Route: 048
  23. ASPIRIN W/DIPYRIDAMOLE [Concomitant]
     Indication: Cerebrovascular accident
     Dosage: 200 MG, BID
     Route: 065
  24. ASPIRIN W/DIPYRIDAMOLE [Concomitant]
     Dosage: 25 MG, BID
     Route: 065
  25. ROSUVASTATIN [Concomitant]
     Active Substance: ROSUVASTATIN
     Indication: Cerebrovascular accident
     Dosage: 20 MG, BID
     Route: 048
  26. LEVOTHYROXINE [Concomitant]
     Active Substance: LEVOTHYROXINE
     Indication: Post procedural hypothyroidism
     Dosage: 0.088 MG, QD
     Route: 048
  27. TIOTROPIUM [Concomitant]
     Active Substance: TIOTROPIUM
     Indication: Chronic obstructive pulmonary disease
     Dosage: 18 UG, QD
     Route: 048
  28. TIOTROPIUM [Concomitant]
     Active Substance: TIOTROPIUM
     Indication: Asthma
  29. ALBUTEROL [Concomitant]
     Active Substance: ALBUTEROL
     Indication: Product used for unknown indication
     Dosage: 100 UG/ PUFF
     Route: 065
  30. ALBUTEROL [Concomitant]
     Active Substance: ALBUTEROL
     Dosage: UNK, QID (2 PUFFS FOUR TIMES DAILY IF NEEDED)
     Route: 065
  31. ACETAMINOPHEN [Concomitant]
     Active Substance: ACETAMINOPHEN
     Indication: Fibromyalgia
     Dosage: 650 MG, UNK (EVERY 4-6 H AS NEEDED)
     Route: 065
  32. GLUCOSAMINE [Concomitant]
     Active Substance: GLUCOSAMINE
     Indication: Arthritis
     Dosage: 500 MG, BID
     Route: 065
  33. LACTULOSE [Concomitant]
     Active Substance: LACTULOSE
     Indication: Constipation
     Dosage: 15 ML, QD
     Route: 048
  34. MAGNESIUM HYDROXIDE [Concomitant]
     Active Substance: MAGNESIUM HYDROXIDE
     Indication: Constipation
     Dosage: 311 MG, UNK (1-2 TABLETS AT BEDTIME)
     Route: 065
  35. FIBRE SOLUBLE [Concomitant]
     Indication: Constipation
     Dosage: UNK
     Route: 065
  36. BISACODYL [Concomitant]
     Active Substance: BISACODYL
     Indication: Constipation
     Dosage: 2 UNK, UNK (PILLS AS NEEDED)
     Route: 048
  37. CRANBERRY [Concomitant]
     Active Substance: CRANBERRY
     Indication: Bladder ablation
     Dosage: 500 MG, TID
     Route: 065
  38. OMEPRAZOLE [Concomitant]
     Active Substance: OMEPRAZOLE
     Indication: Duodenal ulcer
     Dosage: 20 MG, QD
     Route: 048
  39. LEVOFLOXACIN [Concomitant]
     Active Substance: LEVOFLOXACIN
     Indication: Urinary tract infection
     Dosage: 250 MG, QD
     Route: 065

REACTIONS (5)
  - Dementia [Unknown]
  - Cognitive disorder [Recovered/Resolved]
  - Sedation complication [Recovering/Resolving]
  - Orthostatic hypotension [Recovered/Resolved]
  - Balance disorder [Recovered/Resolved]
